FAERS Safety Report 25868717 (Version 1)
Quarter: 2025Q4

REPORT INFORMATION
  Report Type: Spontaneous
  Country: US (occurrence: US)
  Receive Date: 20251001
  Receipt Date: 20251001
  Transmission Date: 20260118
  Serious: No
  Sender: RECKITT BENCKISER
  Company Number: US-INDIVIOR US-INDV-154704-2024

PATIENT
  Age: 25 Year
  Sex: Female

DRUGS (6)
  1. SUBOXONE [Suspect]
     Active Substance: BUPRENORPHINE HYDROCHLORIDE\NALOXONE HYDROCHLORIDE
     Indication: Drug use disorder
     Dosage: 8 MILLIGRAM
     Route: 065
     Dates: start: 20140116
  2. SUBOXONE [Suspect]
     Active Substance: BUPRENORPHINE HYDROCHLORIDE\NALOXONE HYDROCHLORIDE
     Indication: Drug use disorder
     Dosage: 8 MILLIGRAM, QD
     Route: 060
     Dates: start: 20120510
  3. SUBOXONE [Suspect]
     Active Substance: BUPRENORPHINE HYDROCHLORIDE\NALOXONE HYDROCHLORIDE
     Indication: Drug use disorder
     Dosage: 4 MILLIGRAM
     Route: 065
     Dates: start: 20181015
  4. SUBOXONE [Suspect]
     Active Substance: BUPRENORPHINE HYDROCHLORIDE\NALOXONE HYDROCHLORIDE
     Indication: Drug use disorder
     Dosage: 2 MILLIGRAM, BID
     Route: 060
     Dates: start: 20130307
  5. BUPRENORPHINE [Suspect]
     Active Substance: BUPRENORPHINE
     Indication: Drug use disorder
     Dosage: 2 MILLIGRAM
     Route: 065
     Dates: start: 20190709
  6. ZUBSOLV [Suspect]
     Active Substance: BUPRENORPHINE HYDROCHLORIDE\NALOXONE HYDROCHLORIDE
     Indication: Drug use disorder
     Dosage: 5.7 MILLIGRAM
     Route: 065
     Dates: start: 20150730

REACTIONS (9)
  - Periodontitis [Unknown]
  - Dental caries [Not Recovered/Not Resolved]
  - Tooth erosion [Not Recovered/Not Resolved]
  - Tooth fracture [Unknown]
  - Tooth loss [Unknown]
  - Tooth abscess [Unknown]
  - Toothache [Unknown]
  - Maternal exposure during pregnancy [Recovered/Resolved]
  - Inappropriate schedule of product administration [Recovered/Resolved]

NARRATIVE: CASE EVENT DATE: 20130307
